FAERS Safety Report 7369731-8 (Version None)
Quarter: 2011Q1

REPORT INFORMATION
  Report Type: 
  Country: None (occurrence: None)
  Receive Date: 20110317
  Receipt Date: 20110317
  Transmission Date: 20110831
  Serious: Yes (Life-Threatening)
  Sender: FDA-Public Use
  Company Number: None

PATIENT
  Sex: Female
  Weight: 78.0187 kg

DRUGS (2)
  1. MIRTAZAPINE [Suspect]
     Dosage: 1 PILL A BED TIME EVERY NIGHT
     Dates: start: 20110112, end: 20110301
  2. LOVASTATIN [Suspect]
     Dosage: 1/2 TABLET BED-TIME
     Dates: start: 20110112, end: 20110301

REACTIONS (5)
  - MUSCULAR WEAKNESS [None]
  - CONFUSIONAL STATE [None]
  - NERVOUSNESS [None]
  - FALL [None]
  - ABDOMINAL PAIN UPPER [None]
